FAERS Safety Report 12297894 (Version 2)
Quarter: 2016Q2

REPORT INFORMATION
  Report Type: Spontaneous
  Country: BR (occurrence: BR)
  Receive Date: 20160422
  Receipt Date: 20160504
  Transmission Date: 20160815
  Serious: Yes (Hospitalization, Other)
  Sender: FDA-Public Use
  Company Number: BR-PFIZER INC-2016221360

PATIENT
  Age: 74 Year
  Sex: Female
  Weight: 60 kg

DRUGS (10)
  1. LIPITOR [Suspect]
     Active Substance: ATORVASTATIN CALCIUM
     Indication: BLOOD CHOLESTEROL INCREASED
     Dosage: 10 MG, DAILY
     Route: 048
     Dates: start: 2001
  2. LEXOTAN [Concomitant]
     Active Substance: BROMAZEPAM
     Dosage: UNK
     Dates: start: 1986
  3. LECITHIN [Concomitant]
     Active Substance: LECITHIN
     Indication: DRUG THERAPY
     Dosage: UNK
  4. JARDIANCE [Concomitant]
     Active Substance: EMPAGLIFLOZIN
     Indication: DIABETES MELLITUS
     Dosage: 1 DF, 1X/DAY EARLY
     Route: 048
     Dates: start: 201601
  5. VASTAREL [Concomitant]
     Active Substance: TRIMETAZIDINE DIHYDROCHLORIDE
     Indication: CARDIAC DISORDER
     Dosage: 1 DF, 2X/DAY (IN THE MORNING AND AT NIGHT)
     Route: 048
     Dates: start: 2008
  6. NEBILET [Concomitant]
     Active Substance: NEBIVOLOL
     Dosage: UNK
     Dates: start: 2008
  7. PENTOXIFYLLINE. [Concomitant]
     Active Substance: PENTOXIFYLLINE
     Indication: CARDIAC DISORDER
     Dosage: 1 DF, UNK
     Route: 048
  8. OMEGA 3 /01333901/ [Concomitant]
     Active Substance: FISH OIL\TOCOPHEROL
     Dosage: UNK
     Route: 048
  9. KOMBIGLYZE XR [Concomitant]
     Active Substance: METFORMIN HYDROCHLORIDE\SAXAGLIPTIN HYDROCHLORIDE
     Indication: DIABETES MELLITUS
     Dosage: 1 DF, 1X/DAY (AT NIGHT)
     Route: 048
     Dates: start: 201601
  10. VASTAREL [Concomitant]
     Active Substance: TRIMETAZIDINE DIHYDROCHLORIDE
     Indication: BLOOD PRESSURE ABNORMAL

REACTIONS (7)
  - Thrombosis [Recovered/Resolved]
  - Diabetic neuropathy [Not Recovered/Not Resolved]
  - Nodule [Not Recovered/Not Resolved]
  - Aphasia [Recovered/Resolved]
  - Intentional product misuse [Recovered/Resolved]
  - Nodule [Not Recovered/Not Resolved]
  - Cerebral infarction [Recovered/Resolved]

NARRATIVE: CASE EVENT DATE: 2006
